FAERS Safety Report 7939928-4 (Version None)
Quarter: 2011Q4

REPORT INFORMATION
  Report Type: 
  Country: None (occurrence: None)
  Receive Date: 20111125
  Receipt Date: 20111122
  Transmission Date: 20120403
  Serious: Yes (Hospitalization)
  Sender: FDA-Public Use
  Company Number: FR-PFIZER INC-2011284997

PATIENT
  Age: 61 Year
  Sex: Female

DRUGS (6)
  1. PREVISCAN [Concomitant]
  2. BISOPROLOL FUMARATE [Concomitant]
  3. SIMVASTATIN [Concomitant]
  4. AMLODIPINE BESYLATE [Suspect]
     Dosage: UNK
     Route: 048
     Dates: end: 20100417
  5. PERINDOPRIL ERBUMINE [Suspect]
     Dosage: UNK
     Route: 048
  6. LASIX [Suspect]
     Indication: HYPERTENSION
     Dosage: UNK
     Route: 048
     Dates: start: 20100101, end: 20100417

REACTIONS (3)
  - MALAISE [None]
  - HYPOTENSION [None]
  - RENAL FAILURE ACUTE [None]
